FAERS Safety Report 9883747 (Version 4)
Quarter: 2014Q1

REPORT INFORMATION
  Report Type: Spontaneous
  Country: US (occurrence: US)
  Receive Date: 20140210
  Receipt Date: 20140314
  Transmission Date: 20141002
  Serious: Yes (Death, Other)
  Sender: FDA-Public Use
  Company Number: US-009507513-1402USA003057

PATIENT
  Age: 56 Year
  Sex: Male

DRUGS (1)
  1. EMEND [Suspect]
     Dosage: EMEND VIAL (SDV,MDV OR ADDITIVE)
     Route: 042
     Dates: start: 2013, end: 20130926

REACTIONS (3)
  - Chronic lymphocytic leukaemia refractory [Fatal]
  - Lymphadenopathy [Fatal]
  - Lymphoma [Unknown]
